FAERS Safety Report 18372022 (Version 1)
Quarter: 2020Q4

REPORT INFORMATION
  Report Type: Spontaneous
  Country: PT (occurrence: PT)
  Receive Date: 20201012
  Receipt Date: 20201012
  Transmission Date: 20210114
  Serious: Yes (Disabling)
  Sender: FDA-Public Use
  Company Number: PT-HIKMA PHARMACEUTICALS USA INC.-PT-H14001-20-52283

PATIENT
  Age: 6 Year
  Sex: Female
  Weight: 20.4 kg

DRUGS (2)
  1. LEVETIRACETAM. [Concomitant]
     Active Substance: LEVETIRACETAM
     Indication: PRODUCT USED FOR UNKNOWN INDICATION
     Dosage: UNKNOWN
     Route: 065
  2. ACICLOVIR HIKMA [Suspect]
     Active Substance: ACYCLOVIR SODIUM
     Indication: PRODUCT USED FOR UNKNOWN INDICATION
     Dosage: 1500/M2, EV, 8-8H
     Route: 042
     Dates: start: 20200815, end: 20200913

REACTIONS (1)
  - Herpes simplex reactivation [Unknown]

NARRATIVE: CASE EVENT DATE: 20200915
